FAERS Safety Report 23040125 (Version 2)
Quarter: 2023Q4

REPORT INFORMATION
  Report Type: Spontaneous
  Country: SE (occurrence: SE)
  Receive Date: 20231006
  Receipt Date: 20231025
  Transmission Date: 20240110
  Serious: Yes (Hospitalization, Other)
  Sender: FDA-Public Use
  Company Number: SE-JNJFOC-20230967294

PATIENT

DRUGS (1)
  1. BOSENTAN [Suspect]
     Active Substance: BOSENTAN
     Indication: Right-to-left cardiac shunt
     Route: 048

REACTIONS (12)
  - Pulmonary hypertension [Unknown]
  - Pulmonary embolism [Unknown]
  - Dyspnoea [Unknown]
  - Lung transplant [Unknown]
  - Heart transplant [Unknown]
  - Congenital arterial malformation [Unknown]
  - Haemoptysis [Unknown]
  - Headache [Unknown]
  - Subcutaneous emphysema [Unknown]
  - COVID-19 [Recovered/Resolved]
  - Glomerular filtration rate decreased [Unknown]
  - Off label use [Unknown]
